FAERS Safety Report 11636603 (Version 1)
Quarter: 2015Q4

REPORT INFORMATION
  Report Type: Other
  Country: US (occurrence: US)
  Receive Date: 20151016
  Receipt Date: 20151016
  Transmission Date: 20160304
  Serious: No
  Sender: FDA-Public Use
  Company Number: US-TRIS PHARMA, INC.-1043034

PATIENT
  Age: 22 Month
  Sex: Female
  Weight: 9.46 kg

DRUGS (1)
  1. KARBINAL ER [Suspect]
     Active Substance: CARBINOXAMINE MALEATE
     Indication: URTICARIA
     Route: 048

REACTIONS (2)
  - Urticaria [Unknown]
  - Off label use [Unknown]
